FAERS Safety Report 24575594 (Version 1)
Quarter: 2024Q4

REPORT INFORMATION
  Report Type: Spontaneous
  Country: US (occurrence: US)
  Receive Date: 20241104
  Receipt Date: 20241104
  Transmission Date: 20250114
  Serious: No
  Sender: Haleon PLC
  Company Number: US-HALEON-2206222

PATIENT

DRUGS (1)
  1. ADVIL LIQUI-GELS [Suspect]
     Active Substance: IBUPROFEN
     Indication: Product used for unknown indication
     Dates: start: 20241031

REACTIONS (2)
  - Product package associated injury [Recovering/Resolving]
  - Skin laceration [Recovering/Resolving]

NARRATIVE: CASE EVENT DATE: 20241031
